FAERS Safety Report 5135257-5 (Version None)
Quarter: 2006Q4

REPORT INFORMATION
  Report Type: 
  Country: None (occurrence: None)
  Receive Date: 20061026
  Receipt Date: 20061017
  Transmission Date: 20070319
  Serious: Yes (Hospitalization)
  Sender: FDA-Public Use
  Company Number: US-JNJFOC-20060900244

PATIENT
  Sex: Female

DRUGS (4)
  1. REMICADE [Suspect]
     Route: 042
  2. REMICADE [Suspect]
     Indication: CROHN'S DISEASE
     Route: 042
  3. 6-MP [Concomitant]
     Indication: CROHN'S DISEASE
  4. ASACOL [Concomitant]
     Indication: CROHN'S DISEASE
     Dosage: DOSE IS 3600 MG DAILY/PATIENT HAS BEEN ON DRUG GREATER THAN FIVE YEARS

REACTIONS (10)
  - BLOOD PRESSURE SYSTOLIC INCREASED [None]
  - DYSKINESIA [None]
  - EXTRADURAL ABSCESS [None]
  - HAEMOGLOBIN DECREASED [None]
  - INTRASPINAL ABSCESS [None]
  - MUSCULOSKELETAL PAIN [None]
  - OSTEOMYELITIS [None]
  - SPINAL CORD COMPRESSION [None]
  - STAPHYLOCOCCAL INFECTION [None]
  - URINARY TRACT INFECTION [None]
